FAERS Safety Report 23866725 (Version 2)
Quarter: 2024Q2

REPORT INFORMATION
  Report Type: Spontaneous
  Country: JP (occurrence: JP)
  Receive Date: 20240517
  Receipt Date: 20240521
  Transmission Date: 20240716
  Serious: Yes (Death, Other)
  Sender: FDA-Public Use
  Company Number: JP-TAKEDA-2024TUS046315

PATIENT
  Age: 75 Year
  Sex: Male

DRUGS (2)
  1. FOSRENOL [Suspect]
     Active Substance: LANTHANUM CARBONATE
     Indication: Hyperphosphataemia
     Dosage: UNK
     Route: 048
     Dates: end: 20240501
  2. FOSRENOL [Suspect]
     Active Substance: LANTHANUM CARBONATE
     Indication: Chronic kidney disease

REACTIONS (6)
  - Sepsis [Fatal]
  - Neoplasm malignant [Fatal]
  - Cholestasis [Unknown]
  - Hepatic function abnormal [Unknown]
  - Urine bilirubin increased [Unknown]
  - Blood bilirubin increased [Unknown]

NARRATIVE: CASE EVENT DATE: 20240418
